FAERS Safety Report 9327715 (Version 1)
Quarter: 2013Q2

REPORT INFORMATION
  Report Type: Spontaneous
  Country: US (occurrence: US)
  Receive Date: 20130604
  Receipt Date: 20130604
  Transmission Date: 20140414
  Serious: No
  Sender: FDA-Public Use
  Company Number: US-AMGEN-USASP2013037340

PATIENT
  Age: 59 Year
  Sex: Female

DRUGS (2)
  1. ENBREL [Suspect]
     Indication: PSORIATIC ARTHROPATHY
     Dosage: 50 MG, QWK
     Route: 065
     Dates: start: 20120601, end: 201304
  2. ENBREL [Suspect]
     Indication: PSORIASIS

REACTIONS (3)
  - Pruritus [Not Recovered/Not Resolved]
  - Injection site pain [Recovered/Resolved]
  - Psoriasis [Not Recovered/Not Resolved]
